FAERS Safety Report 7608313-7 (Version None)
Quarter: 2011Q3

REPORT INFORMATION
  Report Type: 
  Country: None (occurrence: None)
  Receive Date: 20110706
  Receipt Date: 20110623
  Transmission Date: 20111222
  Serious: Yes (Hospitalization, Other)
  Sender: FDA-Public Use
  Company Number: AUR-APL-2011-03640

PATIENT
  Age: 83 Year
  Sex: Male

DRUGS (10)
  1. LATANOPROST [Concomitant]
  2. FUROSEMIDE [Concomitant]
  3. METFORMIN HCL [Concomitant]
  4. CYPROTERONE ACETATE (CYPROTERONE ACCETATE (CYPROTERONE ACETATE) [Suspect]
     Indication: PROSTATE CANCER
     Dosage: 300 MG (100 MG,3 IN 1 D), ORAL
     Route: 048
     Dates: start: 20110601, end: 20110611
  5. FINASTERIDE [Concomitant]
  6. FOLIC ACID [Concomitant]
  7. ZOLADEX [Concomitant]
  8. SIMVASTATIN [Suspect]
     Indication: BLOOD CHOLESTEROL INCREASED
     Dosage: 40 MG (40 MG,1 IN 1 D), ORAL
     Route: 048
     Dates: end: 20110611
  9. ASPIRIN [Concomitant]
  10. SENNA (SENNA ALEXANDRINA) [Concomitant]

REACTIONS (7)
  - MYOPATHY [None]
  - BLOOD BILIRUBIN INCREASED [None]
  - MUSCULAR WEAKNESS [None]
  - INTERNATIONAL NORMALISED RATIO INCREASED [None]
  - ALANINE AMINOTRANSFERASE INCREASED [None]
  - BLOOD CREATINE PHOSPHOKINASE INCREASED [None]
  - HEPATIC FUNCTION ABNORMAL [None]
